FAERS Safety Report 8026074-7 (Version None)
Quarter: 2012Q1

REPORT INFORMATION
  Report Type: 
  Country: None (occurrence: None)
  Receive Date: 20120105
  Receipt Date: 20110523
  Transmission Date: 20120608
  Serious: No
  Sender: FDA-Public Use
  Company Number: US-ABBOTT-11P-163-0728450-00

PATIENT
  Sex: Female
  Weight: 69.462 kg

DRUGS (3)
  1. SYNTHROID [Suspect]
     Indication: HYPOTHYROIDISM
     Dates: start: 20070101
  2. SYNTHROID [Suspect]
     Dates: end: 20101101
  3. SYNTHROID [Suspect]
     Dates: start: 20101101

REACTIONS (6)
  - HEADACHE [None]
  - EUPHORIC MOOD [None]
  - FEELING HOT [None]
  - INSOMNIA [None]
  - TINNITUS [None]
  - FATIGUE [None]
